FAERS Safety Report 19593313 (Version 1)
Quarter: 2021Q3

REPORT INFORMATION
  Report Type: Report from Study
  Country: IN (occurrence: IN)
  Receive Date: 20210722
  Receipt Date: 20210722
  Transmission Date: 20211014
  Serious: Yes (Hospitalization)
  Sender: FDA-Public Use
  Company Number: NVSC2021IN155761

PATIENT
  Age: 48 Year
  Sex: Female

DRUGS (1)
  1. TAURITMO [Suspect]
     Active Substance: MIDOSTAURIN
     Indication: ACUTE MYELOID LEUKAEMIA
     Dosage: 50 MG, BID
     Route: 065
     Dates: start: 20210618, end: 20210626

REACTIONS (1)
  - Tachycardia [Not Recovered/Not Resolved]

NARRATIVE: CASE EVENT DATE: 20210626
